FAERS Safety Report 4884656-5 (Version None)
Quarter: 2005Q4

REPORT INFORMATION
  Report Type: 
  Country: None (occurrence: None)
  Receive Date: 20051201
  Receipt Date: 20050912
  Transmission Date: 20060501
  Serious: No
  Sender: FDA-Public Use
  Company Number: 2005PV002054

PATIENT
  Age: 78 Year
  Sex: Male
  Weight: 83.9154 kg

DRUGS (14)
  1. BYETTA [Suspect]
     Indication: DIABETES MELLITUS NON-INSULIN-DEPENDENT
     Dosage: 5 MCG; BID; SC
     Route: 058
     Dates: start: 20050819
  2. GLIPIZIDE [Concomitant]
  3. HUMULIN [Concomitant]
  4. ADALAT [Concomitant]
  5. PRAVACHOL [Concomitant]
  6. METOPROLOL [Concomitant]
  7. PROSOM [Concomitant]
  8. ASPIRIN [Concomitant]
  9. VITAMIN CAP [Concomitant]
  10. LIPITOR [Concomitant]
  11. B100 [Concomitant]
  12. FISH OIL [Concomitant]
  13. NEURONTIN [Concomitant]
  14. METAMUCIL-2 [Concomitant]

REACTIONS (5)
  - BLOOD GLUCOSE DECREASED [None]
  - CONSTIPATION [None]
  - DECREASED APPETITE [None]
  - DIARRHOEA [None]
  - WEIGHT DECREASED [None]
